FAERS Safety Report 15478907 (Version 1)
Quarter: 2018Q4

REPORT INFORMATION
  Report Type: Other
  Country: US (occurrence: US)
  Receive Date: 20181009
  Receipt Date: 20181009
  Transmission Date: 20190205
  Serious: No
  Sender: FDA-Public Use
  Company Number: US-MERZ NORTH AMERICA, INC.-18MRZ-00521

PATIENT
  Sex: Female

DRUGS (1)
  1. ASCLERA [Suspect]
     Active Substance: POLIDOCANOL
     Indication: PROLIFERATIVE INJECTION THERAPY
     Dosage: UNKNOWN

REACTIONS (5)
  - Hypokinesia [Unknown]
  - Injection site warmth [Unknown]
  - Nodule [Unknown]
  - Injection site pain [Unknown]
  - Pain [Unknown]
